FAERS Safety Report 26106297 (Version 2)
Quarter: 2025Q4

REPORT INFORMATION
  Report Type: Report from Study
  Country: EU (occurrence: EU)
  Receive Date: 20251201
  Receipt Date: 20251204
  Transmission Date: 20260117
  Serious: Yes (Hospitalization)
  Sender: ROCHE
  Company Number: EU-ML39632-2756475-0

PATIENT
  Age: 48 Year
  Sex: Male
  Weight: 84 kg

DRUGS (5)
  1. OCREVUS [Suspect]
     Active Substance: OCRELIZUMAB
     Indication: Relapsing multiple sclerosis
     Route: 042
     Dates: start: 20180614, end: 20180628
  2. OCREVUS [Suspect]
     Active Substance: OCRELIZUMAB
     Route: 042
     Dates: start: 20181213
  3. EBASTINE [Concomitant]
     Active Substance: EBASTINE
     Route: 048
     Dates: start: 202408
  4. CHOLECALCIFEROL [Concomitant]
     Active Substance: CHOLECALCIFEROL
     Indication: Prophylaxis
     Dosage: 20000
     Route: 048
     Dates: start: 20201116
  5. CIMETIDINE [Concomitant]
     Active Substance: CIMETIDINE
     Route: 048
     Dates: start: 20200611

REACTIONS (2)
  - Hepatitis [Recovered/Resolved]
  - Pancreatitis [Recovered/Resolved]

NARRATIVE: CASE EVENT DATE: 20251101
